FAERS Safety Report 12904869 (Version 6)
Quarter: 2018Q1

REPORT INFORMATION
  Report Type: Spontaneous
  Country: US (occurrence: US)
  Receive Date: 20161102
  Receipt Date: 20180321
  Transmission Date: 20180508
  Serious: No
  Sender: FDA-Public Use
  Company Number: US-ACTELION-A-US2016-144841

PATIENT
  Age: 62 Year
  Sex: Female
  Weight: 117.91 kg

DRUGS (4)
  1. INSULIN [Concomitant]
     Active Substance: INSULIN NOS
  2. ADCIRCA [Concomitant]
     Active Substance: TADALAFIL
  3. OPSUMIT [Suspect]
     Active Substance: MACITENTAN
     Indication: PULMONARY ARTERIAL HYPERTENSION
     Dosage: 10 MG, QD
     Route: 048
     Dates: start: 20150421
  4. AMLODIPINE [Concomitant]
     Active Substance: AMLODIPINE BESYLATE

REACTIONS (10)
  - Weight decreased [Unknown]
  - Headache [Unknown]
  - Bronchitis [Unknown]
  - Decreased appetite [Unknown]
  - Change of bowel habit [Unknown]
  - Flatulence [Unknown]
  - Eye disorder [Unknown]
  - Tooth extraction [Unknown]
  - Feeling cold [Unknown]
  - Dizziness [Unknown]

NARRATIVE: CASE EVENT DATE: 20161026
